FAERS Safety Report 5017378-0 (Version None)
Quarter: 2006Q2

REPORT INFORMATION
  Report Type: 
  Country: None (occurrence: None)
  Receive Date: 20060601
  Receipt Date: 20060601
  Transmission Date: 20061013
  Serious: Yes (Life-Threatening, Disabling, Other)
  Sender: FDA-Public Use
  Company Number: None

PATIENT
  Age: 17 Year
  Sex: Male
  Weight: 117.9352 kg

DRUGS (1)
  1. ZOLOFT  PFIZE5R [Suspect]
     Indication: DEPRESSION
     Dates: start: 19940101, end: 19940415

REACTIONS (1)
  - AGGRESSION [None]
